FAERS Safety Report 7246931-9 (Version None)
Quarter: 2011Q1

REPORT INFORMATION
  Report Type: 
  Country: None (occurrence: None)
  Receive Date: 20110127
  Receipt Date: 20110121
  Transmission Date: 20110831
  Serious: Yes (Death, Hospitalization)
  Sender: FDA-Public Use
  Company Number: TN-SANOFI-AVENTIS-2011SA004594

PATIENT
  Age: 75 Year
  Sex: Male

DRUGS (5)
  1. PLAVIX [Suspect]
     Route: 048
     Dates: start: 20100331, end: 20100707
  2. PLAVIX [Suspect]
     Indication: ACUTE CORONARY SYNDROME
     Route: 048
     Dates: start: 20100331, end: 20100707
  3. KERLONE [Concomitant]
     Route: 048
     Dates: start: 20100331, end: 20100707
  4. KARDEGIC [Concomitant]
     Route: 048
     Dates: start: 20100331, end: 20100707
  5. HYTACAND [Concomitant]
     Route: 048
     Dates: start: 20100331, end: 20100707

REACTIONS (3)
  - DEATH [None]
  - EPISTAXIS [None]
  - MELAENA [None]
